FAERS Safety Report 15212984 (Version 3)
Quarter: 2018Q3

REPORT INFORMATION
  Report Type: Report from Study
  Country: None (occurrence: HU)
  Receive Date: 20180730
  Receipt Date: 20180818
  Transmission Date: 20181010
  Serious: Yes (Death, Hospitalization)
  Sender: FDA-Public Use
  Company Number: HU-ABBVIE-18S-076-2432514-00

PATIENT
  Age: 79 Year
  Sex: Female

DRUGS (10)
  1. HUMULIN N [Concomitant]
     Active Substance: INSULIN HUMAN
     Indication: DIABETES MELLITUS
     Dosage: 100UNIT/ML; 6 UNIT/ML A DAY
     Route: 058
     Dates: start: 1998
  2. BISOPROLOL [Concomitant]
     Active Substance: BISOPROLOL
     Indication: MYOCARDIAL ISCHAEMIA
     Route: 048
  3. MADOPAR [Concomitant]
     Active Substance: BENSERAZIDE HYDROCHLORIDE\LEVODOPA
     Indication: PARKINSON^S DISEASE
     Dosage: TWICE AT NIGHTS; 1 TABLET AT A TIME?200/50MG
     Route: 048
  4. DUODOPA [Suspect]
     Active Substance: CARBIDOPA\LEVODOPA
     Indication: PARKINSON^S DISEASE
     Dosage: MORNING DOSE 6.5 ML; CONTINUOUS DOSE 2.8 ML/H;EXTRA DOSE 1.0 ML
     Route: 050
     Dates: start: 2015
  5. CARDILOPIN [Concomitant]
     Indication: HYPERTENSION
  6. CARDILOPIN [Concomitant]
     Indication: MYOCARDIAL ISCHAEMIA
     Route: 048
  7. QUETIAPINE?TEVA [Concomitant]
     Indication: DELUSION
     Dosage: MORNING, NOON: 1?1TBL; EVENING: 2TBLS
     Route: 048
     Dates: start: 2017
  8. HUMULIN R [Concomitant]
     Active Substance: INSULIN HUMAN
     Indication: DIABETES MELLITUS
     Dosage: 100UNIT/ML; 3X4 UNIT/ML A DAY
     Route: 058
     Dates: start: 1998
  9. FRONTIN [Concomitant]
     Active Substance: ALPRAZOLAM
     Indication: DEPRESSION
     Route: 048
  10. COVEREX?AS KOMB [Concomitant]
     Indication: HYPERTENSION
     Dosage: 1 TABLET AT A TIME?5/125MG
     Route: 048

REACTIONS (10)
  - Generalised oedema [Not Recovered/Not Resolved]
  - Staphylococcal infection [Not Recovered/Not Resolved]
  - Death [Fatal]
  - Asthenia [Not Recovered/Not Resolved]
  - Femoral neck fracture [Recovering/Resolving]
  - Mental disorder [Unknown]
  - Altered state of consciousness [Not Recovered/Not Resolved]
  - Decubitus ulcer [Not Recovered/Not Resolved]
  - Immobile [Not Recovered/Not Resolved]
  - Fall [Recovered/Resolved]

NARRATIVE: CASE EVENT DATE: 201806
